FAERS Safety Report 5179608-4 (Version None)
Quarter: 2006Q4

REPORT INFORMATION
  Report Type: 
  Country: None (occurrence: None)
  Receive Date: 20061211
  Receipt Date: 20061018
  Transmission Date: 20070319
  Serious: Yes (Other)
  Sender: FDA-Public Use
  Company Number: 2006127855

PATIENT
  Age: 68 Year
  Sex: Female
  Weight: 68.0396 kg

DRUGS (9)
  1. GLUCOTROL XL [Suspect]
     Indication: DIABETES MELLITUS
     Dosage: 2.5 MG (2.5 MG, 1 IN 1 D)
  2. PREMARIN [Concomitant]
  3. ALL OTHER THERAPEUTIC PRODUCTS [Concomitant]
  4. ACTIGALL [Concomitant]
  5. PREVACID [Concomitant]
  6. KLONOPIN [Concomitant]
  7. PROZAC [Concomitant]
  8. CODEINE SUL TAB [Concomitant]
  9. CALCIUM                    (CALCIUM) [Concomitant]

REACTIONS (8)
  - BLOOD GLUCOSE INCREASED [None]
  - DYSGEUSIA [None]
  - DYSPHONIA [None]
  - FATIGUE [None]
  - GLOSSODYNIA [None]
  - HAEMOGLOBIN DECREASED [None]
  - HEMIPARESIS [None]
  - NAUSEA [None]
